FAERS Safety Report 6380195-3 (Version None)
Quarter: 2009Q3

REPORT INFORMATION
  Report Type: 
  Country: None (occurrence: None)
  Receive Date: 20090929
  Receipt Date: 20090917
  Transmission Date: 20100115
  Serious: Yes (Hospitalization)
  Sender: FDA-Public Use
  Company Number: US-JNJFOC-20090803573

PATIENT
  Sex: Female
  Weight: 58.97 kg

DRUGS (4)
  1. REMICADE [Suspect]
     Route: 042
     Dates: start: 20090313, end: 20090622
  2. REMICADE [Suspect]
     Route: 042
     Dates: start: 20090313, end: 20090622
  3. REMICADE [Suspect]
     Route: 042
     Dates: start: 20090313, end: 20090622
  4. REMICADE [Suspect]
     Indication: RHEUMATOID ARTHRITIS
     Route: 042
     Dates: start: 20090313, end: 20090622

REACTIONS (1)
  - DIVERTICULITIS [None]
